FAERS Safety Report 7641407-9 (Version None)
Quarter: 2011Q3

REPORT INFORMATION
  Report Type: 
  Country: None (occurrence: None)
  Receive Date: 20110728
  Receipt Date: 20110721
  Transmission Date: 20111222
  Serious: Yes (Hospitalization, Other)
  Sender: FDA-Public Use
  Company Number: FR-PFIZER INC-2011169803

PATIENT
  Age: 73 Year
  Sex: Male

DRUGS (10)
  1. TADENAN [Concomitant]
  2. ATROVENT [Concomitant]
  3. ATARAX [Concomitant]
  4. FORLAX [Concomitant]
  5. CALCIPARINE [Concomitant]
  6. DRONEDARONE HCL [Suspect]
     Indication: ATRIAL FIBRILLATION
     Dosage: 200 MG, UNK
     Route: 048
  7. ZYPREXA [Suspect]
     Indication: BIPOLAR DISORDER
     Dosage: UNK
     Route: 048
     Dates: end: 20110605
  8. COUMADIN [Concomitant]
  9. VALPROIC ACID [Concomitant]
  10. PANTOPRAZOLE [Concomitant]

REACTIONS (3)
  - ELECTROCARDIOGRAM QT PROLONGED [None]
  - TORSADE DE POINTES [None]
  - DRUG INTERACTION [None]
